FAERS Safety Report 17982213 (Version 2)
Quarter: 2020Q3

REPORT INFORMATION
  Report Type: Spontaneous
  Country: FR (occurrence: FR)
  Receive Date: 20200706
  Receipt Date: 20200710
  Transmission Date: 20201103
  Serious: Yes (Hospitalization)
  Sender: FDA-Public Use
  Company Number: NVSC2020FR188676

PATIENT
  Age: 63 Year
  Sex: Female

DRUGS (3)
  1. PREDNISONE. [Suspect]
     Active Substance: PREDNISONE
     Dosage: UNK (DOSE DECREASED TO 40 MG/D)
     Route: 065
  2. PREDNISONE. [Suspect]
     Active Substance: PREDNISONE
     Indication: STILL^S DISEASE
     Dosage: 3 BOLUSES (WITH A CONTINUATION AT 1 MG/KG)
     Route: 065
  3. ANAKINRA [Suspect]
     Active Substance: ANAKINRA
     Indication: STILL^S DISEASE
     Dosage: 100 MILLIGRAM, QD
     Route: 065

REACTIONS (4)
  - Metrorrhagia [Unknown]
  - Steroid diabetes [Unknown]
  - Petechiae [Unknown]
  - Purpura [Unknown]
